FAERS Safety Report 10742785 (Version 1)
Quarter: 2015Q1

REPORT INFORMATION
  Report Type: Other
  Country: FR (occurrence: FR)
  Receive Date: 20150127
  Receipt Date: 20150127
  Transmission Date: 20150721
  Serious: Yes (Hospitalization, Other)
  Sender: FDA-Public Use
  Company Number: FR-TAKEDA-2015TUS000923

PATIENT
  Age: 80 Year
  Sex: Female
  Weight: 76 kg

DRUGS (4)
  1. ADENURIC [Suspect]
     Active Substance: FEBUXOSTAT
     Indication: PRODUCT USED FOR UNKNOWN INDICATION
     Dosage: UNK
     Route: 048
     Dates: end: 20140318
  2. AMOXICILLINE/ACIDE CLAVULANIQUE SANDOZ (SPEKTRAMOX) [Suspect]
     Active Substance: AMOXICILLIN\CLAVULANIC ACID
     Indication: HYPERTHERMIA
     Dosage: 1 G, TID
     Route: 042
     Dates: start: 20140318, end: 20140320
  3. CIPROFLOXACIN. [Suspect]
     Active Substance: CIPROFLOXACIN
     Indication: HYPERTHERMIA
     Dosage: 500 MG, BID
     Route: 048
     Dates: start: 20140318, end: 20140320
  4. ALLOPURINOL. [Suspect]
     Active Substance: ALLOPURINOL
     Indication: PRODUCT USED FOR UNKNOWN INDICATION
     Dosage: UNK
     Route: 048
     Dates: start: 20140319, end: 20140320

REACTIONS (3)
  - Acute kidney injury [Recovering/Resolving]
  - Rash morbilliform [Recovered/Resolved]
  - Wrong drug administered [Recovered/Resolved]

NARRATIVE: CASE EVENT DATE: 20140319
